FAERS Safety Report 8655129 (Version 2)
Quarter: 2012Q4

REPORT INFORMATION
  Report Type: 
  Country: US (occurrence: US)
  Receive Date: 20120709
  Receipt Date: 20120828
  Transmission Date: 20130627
  Serious: Yes (Hospitalization)
  Sender: FDA-Public Use
  Company Number: US-PFIZER INC-2012010879

PATIENT
  Age: 58 Year
  Sex: Female
  Weight: 124.7 kg

DRUGS (1)
  1. TIKOSYN [Suspect]
     Indication: HEART RATE IRREGULAR
     Dosage: 250 mg, 2x/day
     Dates: start: 201011

REACTIONS (1)
  - Myocardial infarction [Unknown]
